FAERS Safety Report 24543846 (Version 1)
Quarter: 2024Q4

REPORT INFORMATION
  Report Type: Spontaneous
  Country: US (occurrence: US)
  Receive Date: 20241024
  Receipt Date: 20241024
  Transmission Date: 20250114
  Serious: Yes (Other)
  Sender: RECORDATI
  Company Number: US-ORPHANEU-2024008258

PATIENT

DRUGS (1)
  1. SILTUXIMAB [Suspect]
     Active Substance: SILTUXIMAB
     Indication: Castleman^s disease

REACTIONS (6)
  - Facial paralysis [Unknown]
  - Cerebral infarction [Unknown]
  - Basal ganglia infarction [Unknown]
  - Muscular weakness [Unknown]
  - Angiopathy [Recovering/Resolving]
  - Off label use [Recovered/Resolved]
